FAERS Safety Report 25351107 (Version 1)
Quarter: 2025Q2

REPORT INFORMATION
  Report Type: Report from Study
  Country: CA (occurrence: CA)
  Receive Date: 20250523
  Receipt Date: 20250523
  Transmission Date: 20250716
  Serious: Yes (Other)
  Sender: SAMSUNG BIOEPIS
  Company Number: CA-SAMSUNG BIOEPIS-SB-2025-17789

PATIENT
  Age: 19 Year
  Sex: Female

DRUGS (1)
  1. RENFLEXIS [Suspect]
     Active Substance: INFLIXIMAB-ABDA
     Indication: Crohn^s disease
     Dates: start: 20250430

REACTIONS (4)
  - Oedema peripheral [Not Recovered/Not Resolved]
  - Abdominal distension [Unknown]
  - Pallor [Unknown]
  - Malaise [Unknown]

NARRATIVE: CASE EVENT DATE: 20250510
